FAERS Safety Report 20226481 (Version 1)
Quarter: 2021Q4

REPORT INFORMATION
  Report Type: Spontaneous
  Country: DE (occurrence: DE)
  Receive Date: 20211224
  Receipt Date: 20211224
  Transmission Date: 20220303
  Serious: Yes (Hospitalization)
  Sender: FDA-Public Use
  Company Number: DE-ADRED-07332-01

PATIENT
  Age: 57 Year
  Sex: Female
  Weight: 120 kg

DRUGS (13)
  1. ALLOPURINOL [Suspect]
     Active Substance: ALLOPURINOL
     Indication: Product used for unknown indication
     Route: 048
  2. RAMIPRIL [Suspect]
     Active Substance: RAMIPRIL
     Indication: Product used for unknown indication
     Route: 048
  3. NOVORAPID [Suspect]
     Active Substance: INSULIN ASPART
     Indication: Product used for unknown indication
     Dosage: 300 E/3ML, 9-5-7-0, (300 E/3ML, 9-5-7-0,
     Route: 058
  4. INSULIN GLARGINE [Suspect]
     Active Substance: INSULIN GLARGINE
     Indication: Product used for unknown indication
     Dosage: 0-0-0-20
     Route: 058
  5. TORSEMIDE [Suspect]
     Active Substance: TORSEMIDE
     Indication: Product used for unknown indication
     Dosage: 2-1-0-0
     Route: 048
  6. METOPROLOL [Concomitant]
     Active Substance: METOPROLOL
     Indication: Product used for unknown indication
  7. PANTOPRAZOLE [Concomitant]
     Active Substance: PANTOPRAZOLE
     Indication: Product used for unknown indication
     Route: 048
  8. SIMVASTATIN [Concomitant]
     Active Substance: SIMVASTATIN
     Indication: Product used for unknown indication
     Route: 048
  9. Kreon 25000E. [Concomitant]
     Indication: Product used for unknown indication
     Dosage: 3-3-3-0
     Route: 048
  10. Fragmin P Forte 5000I.E. [Concomitant]
     Indication: Product used for unknown indication
     Dosage: 5000 IE/0.2ML, 0-0-1-0
     Route: 058
  11. Ferro sanol duodenal mite 50mg [Concomitant]
     Indication: Product used for unknown indication
     Route: 048
  12. L-Thyrox HEXAL 25Mikrogramm [Concomitant]
     Indication: Product used for unknown indication
     Dosage: 1.5-0-0-0
     Route: 048
  13. ASPIRIN [Concomitant]
     Active Substance: ASPIRIN
     Indication: Product used for unknown indication
     Route: 048

REACTIONS (5)
  - Fracture blisters [Unknown]
  - Pain [Unknown]
  - Pain in extremity [Unknown]
  - Labelled drug-drug interaction medication error [Unknown]
  - Product monitoring error [Unknown]

NARRATIVE: CASE EVENT DATE: 20210220
